FAERS Safety Report 4525086-5 (Version None)
Quarter: 2004Q4

REPORT INFORMATION
  Report Type: 
  Country: None (occurrence: None)
  Receive Date: 20041213
  Receipt Date: 20041207
  Transmission Date: 20050328
  Serious: Yes (Other)
  Sender: FDA-Public Use
  Company Number: JP-MERCK-0412USA01008

PATIENT
  Age: 14 Year
  Sex: Male

DRUGS (16)
  1. PEPCID [Suspect]
     Indication: GASTRIC HAEMORRHAGE
     Route: 048
     Dates: end: 19980101
  2. PEPCID [Suspect]
     Route: 048
     Dates: start: 19980213
  3. PEPCID [Suspect]
     Route: 042
     Dates: start: 19980101, end: 19980101
  4. PEPCID [Suspect]
     Route: 042
     Dates: start: 19980509
  5. PEPCID [Suspect]
     Route: 042
     Dates: start: 19980925
  6. PHENYTOIN [Concomitant]
     Route: 065
  7. CARBAMAZEPINE [Concomitant]
     Route: 065
  8. CLONAZEPAM [Concomitant]
     Route: 065
  9. PHENOBARBITAL [Concomitant]
     Route: 065
  10. VALPROATE SODIUM [Concomitant]
     Route: 065
  11. AMBROXOL HYDROCHLORIDE [Concomitant]
     Route: 065
  12. MARZULENE-S [Concomitant]
     Route: 065
  13. FUROSEMIDE [Concomitant]
     Route: 065
  14. MENATETRENONE [Concomitant]
     Route: 065
  15. CARBOCYSTEINE [Concomitant]
     Route: 065
  16. ALFACALCIDOL [Concomitant]
     Route: 065

REACTIONS (3)
  - BRADYCARDIA [None]
  - GASTRIC HAEMORRHAGE [None]
  - HYPOTENSION [None]
